FAERS Safety Report 25331823 (Version 1)
Quarter: 2025Q2

REPORT INFORMATION
  Report Type: Report from Study
  Country: US (occurrence: US)
  Receive Date: 20250519
  Receipt Date: 20250519
  Transmission Date: 20250717
  Serious: Yes (Hospitalization)
  Sender: ABBVIE
  Company Number: US-ABBVIE-6284319

PATIENT
  Age: 56 Year
  Sex: Male

DRUGS (1)
  1. SKYRIZI [Suspect]
     Active Substance: RISANKIZUMAB-RZAA
     Indication: Crohn^s disease
     Route: 042
     Dates: start: 20250317

REACTIONS (6)
  - Thrombosis [Recovering/Resolving]
  - Blood potassium decreased [Recovering/Resolving]
  - Electrolyte imbalance [Recovering/Resolving]
  - Malaise [Unknown]
  - Memory impairment [Unknown]
  - Confusional state [Unknown]

NARRATIVE: CASE EVENT DATE: 20250101
